FAERS Safety Report 8606854 (Version 8)
Quarter: 2014Q3

REPORT INFORMATION
  Report Type: Spontaneous
  Country: US (occurrence: US)
  Receive Date: 20120611
  Receipt Date: 20140926
  Transmission Date: 20150326
  Serious: Yes (Hospitalization, Other)
  Sender: FDA-Public Use
  Company Number: US-BIOGENIDEC-2012BI019378

PATIENT
  Sex: Male

DRUGS (6)
  1. TYSABRI [Suspect]
     Active Substance: NATALIZUMAB
     Indication: MULTIPLE SCLEROSIS
     Route: 042
     Dates: start: 20071221, end: 20120427
  2. REGLAN [Concomitant]
     Active Substance: METOCLOPRAMIDE HYDROCHLORIDE
     Route: 048
  3. CLONAZEPAM. [Concomitant]
     Active Substance: CLONAZEPAM
     Route: 048
  4. CELEBREX [Concomitant]
     Active Substance: CELECOXIB
     Indication: MUSCULOSKELETAL PAIN
     Route: 048
  5. MECLIZINE [Concomitant]
     Active Substance: MECLIZINE\MECLIZINE HYDROCHLORIDE
     Route: 048
  6. ERGOCALCIFEROL. [Concomitant]
     Active Substance: ERGOCALCIFEROL
     Route: 048

REACTIONS (3)
  - Malaise [Not Recovered/Not Resolved]
  - Progressive multifocal leukoencephalopathy [Recovered/Resolved]
  - Immune reconstitution inflammatory syndrome [Recovered/Resolved]
